FAERS Safety Report 4323069-1 (Version None)
Quarter: 2004Q1

REPORT INFORMATION
  Report Type: 
  Country: None (occurrence: None)
  Receive Date: 20040325
  Receipt Date: 20040315
  Transmission Date: 20041129
  Serious: Yes (Hospitalization)
  Sender: FDA-Public Use
  Company Number: PHRM2004FR01245

PATIENT
  Sex: Female
  Weight: 18 kg

DRUGS (3)
  1. NEORAL [Suspect]
     Indication: RENAL TRANSPLANT
     Dosage: 200 MG DAILY
     Route: 048
  2. NEORAL [Suspect]
     Route: 064
  3. CORTANCYL [Suspect]
     Indication: RENAL TRANSPLANT
     Dosage: 8 MG, QD
     Route: 048

REACTIONS (2)
  - CAESAREAN SECTION [None]
  - COMPLICATIONS OF MATERNAL EXPOSURE TO THERAPEUTIC DRUGS [None]
